FAERS Safety Report 16808832 (Version 1)
Quarter: 2019Q3

REPORT INFORMATION
  Report Type: Spontaneous
  Country: US (occurrence: US)
  Receive Date: 20190916
  Receipt Date: 20190916
  Transmission Date: 20191005
  Serious: Yes (Other)
  Sender: FDA-Public Use
  Company Number: US-ROCHE-2404952

PATIENT
  Age: 47 Year
  Sex: Female

DRUGS (2)
  1. VITAMINE D [Concomitant]
     Active Substance: CHOLECALCIFEROL
     Route: 065
  2. OCREVUS [Suspect]
     Active Substance: OCRELIZUMAB
     Indication: RELAPSING-REMITTING MULTIPLE SCLEROSIS
     Dosage: SECOND SPLIT DOSE: 02/OCT/2018
     Route: 048
     Dates: start: 20180918

REACTIONS (2)
  - Malignant melanoma [Unknown]
  - Pancreatic carcinoma [Unknown]

NARRATIVE: CASE EVENT DATE: 201903
